FAERS Safety Report 5151486-9 (Version None)
Quarter: 2006Q4

REPORT INFORMATION
  Report Type: 
  Country: None (occurrence: None)
  Receive Date: 20061114
  Receipt Date: 20061114
  Transmission Date: 20070319
  Serious: No
  Sender: FDA-Public Use
  Company Number: None

PATIENT
  Age: 34 Year
  Sex: Female
  Weight: 120.2032 kg

DRUGS (2)
  1. ACETAMINOPHEN [Suspect]
     Indication: PAIN
     Dosage: 1000MG   FOUR TO SIX HOURS   PO
     Route: 048
     Dates: start: 20060922, end: 20061109
  2. ACETAMINOPHEN [Suspect]
     Indication: PYREXIA
     Dosage: 1000MG   FOUR TO SIX HOURS   PO
     Route: 048
     Dates: start: 20060922, end: 20061109

REACTIONS (4)
  - ABDOMINAL PAIN UPPER [None]
  - NAUSEA [None]
  - PHARMACEUTICAL PRODUCT COMPLAINT [None]
  - POOR QUALITY DRUG ADMINISTERED [None]
